FAERS Safety Report 7354400-0 (Version None)
Quarter: 2011Q1

REPORT INFORMATION
  Report Type: 
  Country: None (occurrence: None)
  Receive Date: 20110308
  Receipt Date: 20110222
  Transmission Date: 20110831
  Serious: Yes (Other)
  Sender: FDA-Public Use
  Company Number: EU-2011-10010

PATIENT
  Age: 53 Year
  Sex: Female

DRUGS (5)
  1. SIMVASTATIN [Concomitant]
  2. PLETAL [Suspect]
     Indication: ARTERIAL OCCLUSIVE DISEASE
     Dosage: 100 MG MILLIGRAM(S), ORAL
     Route: 048
     Dates: start: 20101228, end: 20110106
  3. ENALAPRIL MALEATE [Concomitant]
  4. ASPIRIN [Concomitant]
  5. PANTOPRAZOLE [Concomitant]

REACTIONS (1)
  - THROMBOCYTOSIS [None]
